FAERS Safety Report 7139512-9 (Version None)
Quarter: 2010Q4

REPORT INFORMATION
  Report Type: 
  Country: None (occurrence: None)
  Receive Date: 20101206
  Receipt Date: 20101124
  Transmission Date: 20110411
  Serious: Yes (Hospitalization)
  Sender: FDA-Public Use
  Company Number: NL-GENENTECH-310339

PATIENT
  Sex: Male
  Weight: 86 kg

DRUGS (14)
  1. RITUXIMAB [Suspect]
     Indication: DIFFUSE LARGE B-CELL LYMPHOMA
     Dosage: 750 MG, UNK
     Route: 042
     Dates: start: 20100927
  2. RITUXIMAB [Suspect]
     Dosage: 750 MG, UNK
     Route: 042
     Dates: start: 20101116
  3. PREDNISONE [Suspect]
     Indication: DIFFUSE LARGE B-CELL LYMPHOMA
     Dosage: 100 MG, UNK
     Route: 048
     Dates: start: 20100927
  4. PREDNISONE [Suspect]
     Dosage: 100 MG, UNK
     Route: 048
     Dates: start: 20101116
  5. CYCLOPHOSPHAMIDE [Suspect]
     Indication: DIFFUSE LARGE B-CELL LYMPHOMA
     Dosage: 1650 MG, UNK
     Route: 042
     Dates: start: 20100927
  6. CYCLOPHOSPHAMIDE [Suspect]
     Dosage: 1575 MG, UNK
     Route: 042
     Dates: start: 20101011
  7. CYCLOPHOSPHAMIDE [Suspect]
     Dosage: 1575 MG, UNK
     Route: 042
     Dates: start: 20101116
  8. DOXORUBICIN HCL [Suspect]
     Indication: DIFFUSE LARGE B-CELL LYMPHOMA
     Dosage: 110 MG, UNK
     Route: 042
     Dates: start: 20100927
  9. DOXORUBICIN HCL [Suspect]
     Dosage: 105 MG, UNK
     Route: 042
     Dates: start: 20101011
  10. DOXORUBICIN HCL [Suspect]
     Dosage: 105 MG, UNK
     Route: 042
     Dates: start: 20101116
  11. VINCRISTINE [Suspect]
     Indication: DIFFUSE LARGE B-CELL LYMPHOMA
     Dosage: 2 MG, UNK
     Route: 042
     Dates: start: 20100927
  12. VINCRISTINE [Suspect]
     Dosage: 2 MG, UNK
     Route: 042
     Dates: start: 20101116
  13. G-CSF [Suspect]
     Indication: DIFFUSE LARGE B-CELL LYMPHOMA
     Dosage: 6 MG, UNK
     Route: 058
     Dates: start: 20100928
  14. G-CSF [Suspect]
     Dosage: 6 MG, UNK
     Route: 058
     Dates: start: 20101117

REACTIONS (1)
  - ABDOMINAL DISCOMFORT [None]
